FAERS Safety Report 8505386-4 (Version None)
Quarter: 2012Q2

REPORT INFORMATION
  Report Type: 
  Country: None (occurrence: None)
  Receive Date: 20120405
  Receipt Date: 20091026
  Transmission Date: 20120825
  Serious: Yes (Disabling, Other)
  Sender: FDA-Public Use
  Company Number: PHEH2009US13073

PATIENT
  Age: 85 Year
  Sex: Female

DRUGS (9)
  1. ASPIRIN [Concomitant]
  2. ASCORBIC ACID [Concomitant]
  3. CALCIUM [Concomitant]
  4. CRESTOR [Concomitant]
  5. VITAMIN D [Concomitant]
  6. MAGNESIUM SULFATE [Concomitant]
  7. RECLAST [Suspect]
     Indication: OSTEOPOROSIS
     Dosage: 5 MG, ONCE/SINGLE, INFUSION
     Dates: start: 20090701, end: 20090701
  8. CENTRUM SILVER (ASCORBIC ACID, CALCIUM, MINERALS NOS, RETINOL, TOCOPHE [Concomitant]
  9. FISH OIL [Concomitant]

REACTIONS (1)
  - DIZZINESS [None]
